FAERS Safety Report 21232973 (Version 9)
Quarter: 2022Q4

REPORT INFORMATION
  Report Type: Other
  Country: DE (occurrence: None)
  Receive Date: 20220819
  Receipt Date: 20221220
  Transmission Date: 20230113
  Serious: Yes (Other)
  Sender: FDA-Public Use
  Company Number: DE-ROCHE-2689335

PATIENT
  Age: 21 Year
  Sex: Male
  Weight: 105 kg

DRUGS (7)
  1. OCREVUS [Suspect]
     Active Substance: OCRELIZUMAB
     Indication: Relapsing-remitting multiple sclerosis
     Route: 042
     Dates: start: 20200923
  2. OCREVUS [Suspect]
     Active Substance: OCRELIZUMAB
     Dosage: SECOND INITIAL DOSE
     Route: 042
     Dates: start: 20200930
  3. OCREVUS [Suspect]
     Active Substance: OCRELIZUMAB
     Route: 042
  4. RIVOTRIL [Concomitant]
     Active Substance: CLONAZEPAM
     Route: 065
  5. RIVOTRIL [Concomitant]
     Active Substance: CLONAZEPAM
     Dosage: PHASING OUT PROCESS
     Route: 065
  6. CARBAMAZEPINE [Concomitant]
     Active Substance: CARBAMAZEPINE
  7. CARBAMAZEPINE [Concomitant]
     Active Substance: CARBAMAZEPINE
     Dosage: PHASING OUT PROCESS AT THE MOMENT (1-0-0)

REACTIONS (20)
  - Neuromyelitis optica spectrum disorder [Not Recovered/Not Resolved]
  - Fatigue [Recovered/Resolved]
  - Gait disturbance [Not Recovered/Not Resolved]
  - Fall [Unknown]
  - Tremor [Not Recovered/Not Resolved]
  - Muscle spasms [Recovered/Resolved]
  - Muscle twitching [Not Recovered/Not Resolved]
  - Vision blurred [Recovered/Resolved]
  - Paraesthesia [Recovering/Resolving]
  - Weight increased [Not Recovered/Not Resolved]
  - Urinary hesitation [Recovering/Resolving]
  - Coordination abnormal [Recovered/Resolved]
  - Tic [Not Recovered/Not Resolved]
  - Sleep disorder [Recovered/Resolved]
  - Ear discomfort [Recovered/Resolved]
  - Sensory disturbance [Recovered/Resolved]
  - COVID-19 [Recovered/Resolved]
  - Cough [Not Recovered/Not Resolved]
  - Tinnitus [Recovered/Resolved]
  - Influenza like illness [Not Recovered/Not Resolved]

NARRATIVE: CASE EVENT DATE: 20200923
